FAERS Safety Report 7203676-9 (Version None)
Quarter: 2010Q4

REPORT INFORMATION
  Report Type: 
  Country: None (occurrence: None)
  Receive Date: 20101230
  Receipt Date: 20101216
  Transmission Date: 20110411
  Serious: Yes (Other)
  Sender: FDA-Public Use
  Company Number: PHHY2010BR85480

PATIENT
  Sex: Male

DRUGS (1)
  1. DIOVAN TRIPLE [Suspect]

REACTIONS (2)
  - NEOPLASM MALIGNANT [None]
  - SURGERY [None]
